FAERS Safety Report 9399768 (Version 1)
Quarter: 2013Q3

REPORT INFORMATION
  Report Type: Spontaneous
  Country: US (occurrence: US)
  Receive Date: 20130715
  Receipt Date: 20130715
  Transmission Date: 20140515
  Serious: Yes (Life-Threatening, Other)
  Sender: FDA-Public Use
  Company Number: US-ROXANE LABORATORIES, INC.-2013-RO-01110RO

PATIENT
  Age: 15 Year
  Sex: Female

DRUGS (3)
  1. QUETIAPINE FUMARATE [Suspect]
     Indication: MAJOR DEPRESSION
     Dosage: 3000 MG
     Route: 048
  2. QUETIAPINE FUMARATE [Suspect]
  3. METFORMIN [Suspect]
     Dosage: 75000 MG
     Route: 048

REACTIONS (6)
  - Intentional overdose [Unknown]
  - Hypoglycaemia [Recovered/Resolved]
  - Lactic acidosis [Recovered/Resolved]
  - Intentional self-injury [Unknown]
  - Somnolence [Unknown]
  - Hypotension [Unknown]
